FAERS Safety Report 17958095 (Version 1)
Quarter: 2020Q2

REPORT INFORMATION
  Report Type: Spontaneous
  Country: FR (occurrence: FR)
  Receive Date: 20200629
  Receipt Date: 20200629
  Transmission Date: 20200714
  Serious: Yes (Other)
  Sender: FDA-Public Use
  Company Number: FR-TEVA-2020-FR-1791851

PATIENT
  Age: 62 Year
  Sex: Male

DRUGS (6)
  1. OLANZAPINE. [Suspect]
     Active Substance: OLANZAPINE
     Indication: PSYCHOTIC DISORDER
     Dosage: 5 MG
     Route: 048
  2. ABILIFY MAINTENA [Suspect]
     Active Substance: ARIPIPRAZOLE
     Indication: PSYCHOTIC DISORDER
     Dosage: 400 MG
     Route: 030
  3. LYRICA [Suspect]
     Active Substance: PREGABALIN
     Indication: NEURALGIA
     Dosage: 150 MG
     Route: 048
     Dates: start: 20200416, end: 20200520
  4. ZOPICLONE [Suspect]
     Active Substance: ZOPICLONE
     Indication: INSOMNIA
     Dosage: 15 MG
     Route: 048
  5. VENLAFAXINE (CHLORHYDRATE DE) [Suspect]
     Active Substance: VENLAFAXINE HYDROCHLORIDE
     Indication: DEPRESSION
     Dosage: 150 MG
     Route: 048
  6. TRAMADOL (CHLORHYDRATE DE) [Suspect]
     Active Substance: TRAMADOL HYDROCHLORIDE
     Indication: PAIN
     Dosage: 100 MG
     Route: 048
     Dates: start: 202001

REACTIONS (1)
  - Hallucination [Not Recovered/Not Resolved]

NARRATIVE: CASE EVENT DATE: 20200511
